FAERS Safety Report 5241961-0 (Version None)
Quarter: 2007Q1

REPORT INFORMATION
  Report Type: 
  Country: None (occurrence: None)
  Receive Date: 20070220
  Receipt Date: 20070209
  Transmission Date: 20070707
  Serious: Yes (Hospitalization)
  Sender: FDA-Public Use
  Company Number: FR-PFIZER INC-2007011461

PATIENT
  Age: 54 Year
  Sex: Male

DRUGS (2)
  1. TAHOR [Suspect]
     Route: 048
  2. BISOPROLOL FUMARATE [Suspect]
     Route: 048

REACTIONS (1)
  - PSORIASIS [None]
